FAERS Safety Report 5901961-1 (Version None)
Quarter: 2008Q3

REPORT INFORMATION
  Report Type: 
  Country: None (occurrence: None)
  Receive Date: 20080925
  Receipt Date: 20080920
  Transmission Date: 20090109
  Serious: Yes (Hospitalization)
  Sender: FDA-Public Use
  Company Number: 2008SP019401

PATIENT
  Age: 40 Year
  Sex: Female

DRUGS (2)
  1. RIBAVIRIN [Suspect]
     Indication: HEPATITIS C
     Dosage: PO
     Route: 048
  2. INTERFERON [Suspect]
     Indication: HEPATITIS C

REACTIONS (2)
  - BLOOD COUNT ABNORMAL [None]
  - DECUBITUS ULCER [None]
